FAERS Safety Report 4314851-5 (Version None)
Quarter: 2004Q1

REPORT INFORMATION
  Report Type: 
  Country: None (occurrence: None)
  Receive Date: 20040308
  Receipt Date: 20040301
  Transmission Date: 20041129
  Serious: Yes (Hospitalization)
  Sender: FDA-Public Use
  Company Number: RB-562-2004

PATIENT
  Age: 47 Year
  Sex: Male

DRUGS (6)
  1. BUPRENORPHINE HYDROCHLORIDE [Suspect]
     Indication: DRUG DEPENDENCE
     Dosage: SL
     Route: 060
     Dates: start: 20021115, end: 20031028
  2. ALPRAZOLAM [Concomitant]
  3. ZOPICLONE [Concomitant]
  4. VALPROATE SEMISODIUM [Concomitant]
  5. NOCTRAN [Concomitant]
  6. CYAMEMAZINE [Concomitant]

REACTIONS (6)
  - DELIRIUM [None]
  - DELUSION OF GRANDEUR [None]
  - DRUG LEVEL BELOW THERAPEUTIC [None]
  - DRUG TOXICITY [None]
  - PSYCHOTIC DISORDER [None]
  - TREATMENT NONCOMPLIANCE [None]
